FAERS Safety Report 11031730 (Version 1)
Quarter: 2015Q2

REPORT INFORMATION
  Report Type: Spontaneous
  Country: US (occurrence: None)
  Receive Date: 20150414
  Receipt Date: 20150414
  Transmission Date: 20150821
  Serious: Yes (Life-Threatening, Disabling)
  Sender: FDA-Public Use
  Company Number: None

PATIENT
  Age: 33 Year
  Sex: Female
  Weight: 102.06 kg

DRUGS (2)
  1. PHENTERMINE [Concomitant]
     Active Substance: PHENTERMINE
  2. CONTRAVE [Suspect]
     Active Substance: BUPROPION HYDROCHLORIDE\NALTREXONE HYDROCHLORIDE
     Indication: WEIGHT CONTROL
     Dosage: 3 PILLS
     Route: 048
     Dates: start: 20150319, end: 20150403

REACTIONS (3)
  - Joint swelling [None]
  - Drug hypersensitivity [None]
  - Peripheral swelling [None]

NARRATIVE: CASE EVENT DATE: 20150404
